FAERS Safety Report 15114745 (Version 1)
Quarter: 2018Q3

REPORT INFORMATION
  Report Type: Report from Study
  Country: US (occurrence: US)
  Receive Date: 20180706
  Receipt Date: 20180706
  Transmission Date: 20181010
  Serious: Yes (Hospitalization, Other)
  Sender: FDA-Public Use
  Company Number: US-BAYER-2018-122931

PATIENT
  Age: 72 Year
  Sex: Female

DRUGS (5)
  1. ADEMPAS [Suspect]
     Active Substance: RIOCIGUAT
     Indication: HIV INFECTION
     Dosage: 1.5 MG, TID
     Route: 048
  2. ADEMPAS [Suspect]
     Active Substance: RIOCIGUAT
     Indication: HIV INFECTION
     Dosage: UNK
     Dates: start: 20180525
  3. UPTRAVI [Concomitant]
     Active Substance: SELEXIPAG
  4. OPSUMIT [Concomitant]
     Active Substance: MACITENTAN
  5. APIXABAN [Concomitant]
     Active Substance: APIXABAN

REACTIONS (4)
  - Cardiac ablation [None]
  - Product use in unapproved indication [None]
  - Off label use [None]
  - Hospitalisation [None]

NARRATIVE: CASE EVENT DATE: 201806
